FAERS Safety Report 11585586 (Version 2)
Quarter: 2016Q4

REPORT INFORMATION
  Report Type: Spontaneous
  Country: CH (occurrence: CH)
  Receive Date: 20151001
  Receipt Date: 20161202
  Transmission Date: 20170206
  Serious: Yes (Other)
  Sender: FDA-Public Use
  Company Number: CH-GLAXOSMITHKLINE-CH2015135194

PATIENT
  Age: 37 Year
  Sex: Female

DRUGS (5)
  1. POLIORIX [Suspect]
     Active Substance: POLIOMYELITIS VACCINE
     Indication: IMMUNISATION
     Dosage: 1 DF
     Route: 030
     Dates: start: 20150619, end: 20150619
  2. PRIORIX [Suspect]
     Active Substance: MEASLES-MUMPS-RUBELLA VIRUS VACCINE
     Indication: IMMUNISATION
     Dosage: 1 DF
     Route: 030
     Dates: start: 20150619, end: 20150619
  3. ENGERIX-B [Suspect]
     Active Substance: HEPATITIS B VIRUS SUBTYPE ADW2 HBSAG SURFACE PROTEIN ANTIGEN
     Indication: IMMUNISATION
     Dosage: 1 DF
     Route: 030
     Dates: start: 20150619, end: 20150619
  4. MALARONE [Suspect]
     Active Substance: ATOVAQUONE\PROGUANIL HYDROCHLORIDE
     Indication: MALARIA PROPHYLAXIS
     Dosage: 100 MG, QD
     Route: 048
     Dates: start: 20150712, end: 20150801
  5. RABIPUR [Suspect]
     Active Substance: RABIES VIRUS STRAIN FLURY LEP ANTIGEN (PROPIOLACTONE INACTIVATED)
     Indication: IMMUNISATION
     Dosage: 1 DF
     Route: 030
     Dates: start: 20150619, end: 20150619

REACTIONS (1)
  - Exposure during pregnancy [Recovered/Resolved]

NARRATIVE: CASE EVENT DATE: 20150703
